FAERS Safety Report 25701541 (Version 1)
Quarter: 2025Q3

REPORT INFORMATION
  Report Type: Report from Study
  Country: CO (occurrence: CO)
  Receive Date: 20250819
  Receipt Date: 20250819
  Transmission Date: 20251020
  Serious: Yes (Disabling, Other)
  Sender: AMGEN
  Company Number: CO-AMGEN-COLSL2025096087

PATIENT
  Age: 53 Year
  Sex: Female

DRUGS (1)
  1. VECTIBIX [Suspect]
     Active Substance: PANITUMUMAB
     Indication: Colorectal cancer metastatic
     Dosage: UNK, Q2WK
     Route: 040
     Dates: start: 20241226, end: 20250710

REACTIONS (3)
  - Skin lesion [Recovered/Resolved]
  - Rash [Not Recovered/Not Resolved]
  - Oral disorder [Recovered/Resolved]

NARRATIVE: CASE EVENT DATE: 20250101
